FAERS Safety Report 21996091 (Version 1)
Quarter: 2023Q1

REPORT INFORMATION
  Report Type: Report from Study
  Country: EG (occurrence: EG)
  Receive Date: 20230215
  Receipt Date: 20230215
  Transmission Date: 20230417
  Serious: Yes (Other)
  Sender: FDA-Public Use
  Company Number: EG-002147023-NVSC2023EG007190

PATIENT
  Age: 57 Year
  Sex: Female

DRUGS (4)
  1. COSENTYX [Suspect]
     Active Substance: SECUKINUMAB
     Indication: Psoriasis
     Dosage: 300 MG, QW (2 PREFILLED PENS PER MONTH AS A LOADING DOSE THEN 2 PREFILLED PENS PER MONTH AS A MAINTE
     Route: 058
     Dates: start: 20220428, end: 20220901
  2. EUTHYROX [Concomitant]
     Active Substance: LEVOTHYROXINE SODIUM
     Indication: Hypothyroidism
     Dosage: UNK UNK, QD (ONCE IN THE MORNING)
     Route: 065
     Dates: start: 2014
  3. VITAMINS [Concomitant]
     Active Substance: VITAMINS
     Indication: Vitamin supplementation
     Dosage: 1 DOSAGE FORM, QD (IN MORNING)
     Route: 065
     Dates: start: 202104
  4. OMEGA 3 [Concomitant]
     Active Substance: CAPSAICIN
     Indication: Vitamin supplementation
     Dosage: 3 DOSAGE FORM, TID
     Route: 065
     Dates: start: 202104

REACTIONS (3)
  - Psoriasis [Not Recovered/Not Resolved]
  - Oedema peripheral [Recovered/Resolved]
  - Off label use [Unknown]

NARRATIVE: CASE EVENT DATE: 20220428
